FAERS Safety Report 11879031 (Version 2)
Quarter: 2016Q1

REPORT INFORMATION
  Report Type: Spontaneous
  Country: JP (occurrence: JP)
  Receive Date: 20151230
  Receipt Date: 20160217
  Transmission Date: 20160526
  Serious: Yes (Life-Threatening, Hospitalization, Other)
  Sender: FDA-Public Use
  Company Number: JP-BRISTOL-MYERS SQUIBB COMPANY-BMS-2015-087499

PATIENT
  Age: 63 Year
  Sex: Male
  Weight: 52 kg

DRUGS (14)
  1. CETUXIMAB [Suspect]
     Active Substance: CETUXIMAB
     Dosage: 250 MG/M2, WEEKLY (1/W)
     Route: 042
     Dates: start: 20151027, end: 20151117
  2. HERBAL EXTRACT NOS [Concomitant]
     Active Substance: HERBALS
     Dosage: 2.5 MG, UNKNOWN
     Route: 048
     Dates: start: 20151028, end: 20160105
  3. CETUXIMAB [Suspect]
     Active Substance: CETUXIMAB
     Indication: HYPOPHARYNGEAL CANCER STAGE IV
     Dosage: 400 MG/M2, UNKNOWN
     Route: 065
     Dates: start: 20151020
  4. CETUXIMAB [Suspect]
     Active Substance: CETUXIMAB
     Dosage: 415 MG, QWK
     Route: 042
     Dates: start: 20151020
  5. HERBAL EXTRACT NOS [Concomitant]
     Active Substance: HERBALS
     Indication: PROPHYLAXIS
     Dosage: UNK UNK, UNKNOWN
     Route: 048
  6. MINOMYCIN [Concomitant]
     Active Substance: MINOCYCLINE HYDROCHLORIDE
     Indication: PROPHYLAXIS
     Dosage: UNK UNK, UNKNOWN
     Route: 048
     Dates: start: 20150930
  7. CALONAL [Concomitant]
     Active Substance: ACETAMINOPHEN
     Indication: PAIN
     Dosage: UNK UNK, UNKNOWN
     Route: 048
     Dates: start: 20150930
  8. SUCRALFATE. [Concomitant]
     Active Substance: SUCRALFATE
     Dosage: 10 ML, UNKNOWN
     Route: 048
     Dates: start: 20151106, end: 20160105
  9. CALONAL [Concomitant]
     Active Substance: ACETAMINOPHEN
     Dosage: 500 MG, UNKNOWN
     Route: 048
     Dates: start: 20151007
  10. MINOMYCIN [Concomitant]
     Active Substance: MINOCYCLINE HYDROCHLORIDE
     Dosage: 100 MG, UNKNOWN
     Route: 048
     Dates: start: 20151021, end: 20160105
  11. TRAMAL [Concomitant]
     Active Substance: TRAMADOL
     Dosage: 25 MG, UNKNOWN
     Route: 048
     Dates: start: 20151117
  12. SUCRALFATE. [Concomitant]
     Active Substance: SUCRALFATE
     Indication: PROPHYLAXIS
     Dosage: UNK UNK, UNKNOWN
     Route: 048
     Dates: start: 20150930
  13. TRAMAL [Concomitant]
     Active Substance: TRAMADOL
     Indication: PAIN
     Dosage: UNK UNK, UNKNOWN
     Route: 048
     Dates: start: 20150930
  14. CETUXIMAB [Suspect]
     Active Substance: CETUXIMAB
     Dosage: 415 MG, QWK
     Route: 042
     Dates: start: 20151124, end: 20151124

REACTIONS (2)
  - Bone marrow failure [Recovered/Resolved]
  - Febrile neutropenia [Recovering/Resolving]

NARRATIVE: CASE EVENT DATE: 20151129
